FAERS Safety Report 6382421-3 (Version None)
Quarter: 2009Q3

REPORT INFORMATION
  Report Type: 
  Country: None (occurrence: None)
  Receive Date: 20090924
  Receipt Date: 20090804
  Transmission Date: 20100115
  Serious: Yes (Disabling)
  Sender: FDA-Public Use
  Company Number: WAES 0706USA01051

PATIENT
  Age: 48 Year
  Sex: Female

DRUGS (8)
  1. VYTORIN [Suspect]
     Indication: BLOOD CHOLESTEROL INCREASED
     Dosage: 10-40 MG/DAILY/PO
     Route: 048
     Dates: start: 20060801, end: 20060901
  2. ATIVAN [Concomitant]
  3. CYMBALTA [Concomitant]
  4. DEMEROL [Concomitant]
  5. DEPAKOTE [Concomitant]
  6. FLEXERIL [Concomitant]
  7. NEURONTIN [Concomitant]
  8. TOPAMAX [Concomitant]

REACTIONS (18)
  - ACTIVITIES OF DAILY LIVING IMPAIRED [None]
  - ASTHENIA [None]
  - CONTUSION [None]
  - DEPRESSION SUICIDAL [None]
  - EYE DISORDER [None]
  - FALL [None]
  - HEAD INJURY [None]
  - HEADACHE [None]
  - HYPOAESTHESIA [None]
  - INSOMNIA [None]
  - JOINT SPRAIN [None]
  - MUSCLE SPASMS [None]
  - MYALGIA [None]
  - MYOPATHY [None]
  - NEUROPATHY PERIPHERAL [None]
  - OEDEMA [None]
  - TOOTH LOSS [None]
  - YELLOW SKIN [None]
